FAERS Safety Report 7037606-X (Version None)
Quarter: 2010Q4

REPORT INFORMATION
  Report Type: 
  Country: None (occurrence: None)
  Receive Date: 20101011
  Receipt Date: 20100929
  Transmission Date: 20110411
  Serious: Yes (Other)
  Sender: FDA-Public Use
  Company Number: PHHY2010US65267

PATIENT
  Sex: Female

DRUGS (5)
  1. SANDOSTATIN [Suspect]
  2. LAMICTAL [Concomitant]
     Indication: CONVULSION
  3. TIZANIDINE HCL [Concomitant]
  4. LORTAB [Concomitant]
  5. METFORMIN [Concomitant]

REACTIONS (1)
  - BRAIN OPERATION [None]
